FAERS Safety Report 7425365-8 (Version None)
Quarter: 2011Q2

REPORT INFORMATION
  Report Type: 
  Country: None (occurrence: None)
  Receive Date: 20110420
  Receipt Date: 20110321
  Transmission Date: 20111010
  Serious: Yes (Other)
  Sender: FDA-Public Use
  Company Number: US-BAYER-2010-001986

PATIENT
  Age: 34 Year
  Sex: Female
  Weight: 78.912 kg

DRUGS (7)
  1. LISINOPRIL [Concomitant]
  2. FLUCONAZOLE [Concomitant]
     Dosage: 150 MG, UNK
     Route: 048
     Dates: start: 20090821
  3. PHENAZOPYRIDINE HCL TAB [Concomitant]
     Dosage: 200 MG, UNK
     Route: 048
     Dates: start: 20090821
  4. YAZ [Suspect]
     Dosage: UNK
     Dates: start: 20090101, end: 20091001
  5. YASMIN [Suspect]
     Indication: PRODUCT USED FOR UNKNOWN INDICATION
  6. BACTRIM [Concomitant]
     Dosage: UNK
     Route: 048
     Dates: start: 20090821
  7. MOTRIN [Concomitant]

REACTIONS (1)
  - CHOLELITHIASIS [None]
